FAERS Safety Report 10713850 (Version 1)
Quarter: 2015Q1

REPORT INFORMATION
  Report Type: Spontaneous
  Country: US (occurrence: US)
  Receive Date: 20150115
  Receipt Date: 20150115
  Transmission Date: 20150721
  Serious: No
  Sender: FDA-Public Use
  Company Number: US-PFIZER INC-2007006842

PATIENT
  Age: 38 Year
  Sex: Female
  Weight: 91 kg

DRUGS (3)
  1. BYETTA [Suspect]
     Active Substance: EXENATIDE
     Indication: TYPE 2 DIABETES MELLITUS
     Dosage: 5 ?G, 2X/DAY
     Route: 058
     Dates: start: 20060111
  2. METFORMIN [Concomitant]
     Active Substance: METFORMIN HYDROCHLORIDE
     Dates: start: 2004
  3. DEPO-PROVERA [Suspect]
     Active Substance: MEDROXYPROGESTERONE ACETATE
     Route: 058
     Dates: start: 2003, end: 2003

REACTIONS (2)
  - Vaginal haemorrhage [Unknown]
  - Menstrual disorder [Unknown]

NARRATIVE: CASE EVENT DATE: 200611
